FAERS Safety Report 23441775 (Version 1)
Quarter: 2024Q1

REPORT INFORMATION
  Report Type: Spontaneous
  Country: PH (occurrence: PH)
  Receive Date: 20240125
  Receipt Date: 20240125
  Transmission Date: 20240409
  Serious: Yes (Other)
  Sender: FDA-Public Use
  Company Number: PH-SUN PHARMACEUTICAL INDUSTRIES LTD-2024R1-428382

PATIENT
  Age: 36 Year
  Sex: Female

DRUGS (2)
  1. DOXORUBICIN [Suspect]
     Active Substance: DOXORUBICIN
     Indication: Sclerosing epithelioid fibrosarcoma
     Dosage: UNKNOWN
     Route: 065
  2. IFOSFAMIDE [Suspect]
     Active Substance: IFOSFAMIDE
     Indication: Sclerosing epithelioid fibrosarcoma
     Dosage: UNKNOWN
     Route: 065

REACTIONS (1)
  - Disease progression [Unknown]
